FAERS Safety Report 20754762 (Version 2)
Quarter: 2022Q2

REPORT INFORMATION
  Report Type: Spontaneous
  Country: DE (occurrence: DE)
  Receive Date: 20220427
  Receipt Date: 20220519
  Transmission Date: 20220721
  Serious: Yes (Other)
  Sender: FDA-Public Use
  Company Number: None

PATIENT
  Age: 34 Year
  Sex: Female
  Weight: 70 kg

DRUGS (2)
  1. DROSPIRENONE [Suspect]
     Active Substance: DROSPIRENONE
     Indication: Prophylaxis
     Dosage: 1X T?GLICH 4MG DOSPRIRENON
     Route: 048
     Dates: start: 20220328, end: 20220404
  2. DROSPIRENONE [Suspect]
     Active Substance: DROSPIRENONE
     Indication: Vaginal cyst

REACTIONS (6)
  - Abdominal discomfort [Not Recovered/Not Resolved]
  - Gastrointestinal haemorrhage [Recovered/Resolved]
  - Dysgeusia [Recovered/Resolved]
  - Gastritis [Recovered/Resolved]
  - Polydipsia [Recovering/Resolving]
  - Abdominal pain upper [Recovered/Resolved]

NARRATIVE: CASE EVENT DATE: 20220328
